FAERS Safety Report 8509298-1 (Version None)
Quarter: 2012Q3

REPORT INFORMATION
  Report Type: 
  Country: None (occurrence: None)
  Receive Date: 20120713
  Receipt Date: 20120629
  Transmission Date: 20120928
  Serious: Yes (Hospitalization, Other)
  Sender: FDA-Public Use
  Company Number: US-ROCHE-1075734

PATIENT
  Age: 45 Year
  Sex: Female
  Weight: 152.2 kg

DRUGS (3)
  1. HEPARIN SODIUM [Suspect]
     Indication: PRODUCT USED FOR UNKNOWN INDICATION
     Route: 042
     Dates: start: 20120512, end: 20120513
  2. AVASTIN [Suspect]
     Indication: OVARIAN EPITHELIAL CANCER
     Dates: start: 20120418
  3. BLINDED EVEROLIMUS [Suspect]
     Indication: OVARIAN EPITHELIAL CANCER
     Route: 048
     Dates: start: 20120418

REACTIONS (19)
  - HYPONATRAEMIA [None]
  - METASTASES TO LYMPH NODES [None]
  - PERIRECTAL ABSCESS [None]
  - BLOOD SODIUM INCREASED [None]
  - METASTASES TO PELVIS [None]
  - ASPARTATE AMINOTRANSFERASE INCREASED [None]
  - ACTIVATED PARTIAL THROMBOPLASTIN TIME PROLONGED [None]
  - METASTASES TO SPLEEN [None]
  - HYPOPHOSPHATAEMIA [None]
  - HYPERGLYCAEMIA [None]
  - HYPOCALCAEMIA [None]
  - METASTASES TO REPRODUCTIVE ORGAN [None]
  - TROPONIN I INCREASED [None]
  - ANORECTAL INFECTION [None]
  - SEPSIS [None]
  - SUPRAVENTRICULAR TACHYCARDIA [None]
  - HYPOALBUMINAEMIA [None]
  - DYSPNOEA [None]
  - METASTASES TO LIVER [None]
